FAERS Safety Report 24767305 (Version 2)
Quarter: 2025Q1

REPORT INFORMATION
  Report Type: Spontaneous
  Country: US (occurrence: US)
  Receive Date: 20241223
  Receipt Date: 20250128
  Transmission Date: 20250408
  Serious: Yes (Disabling, Other)
  Sender: AMGEN
  Company Number: US-AMGEN-USASP2024248807

PATIENT
  Age: 68 Year
  Sex: Female

DRUGS (26)
  1. TEPEZZA [Suspect]
     Active Substance: TEPROTUMUMAB-TRBW
     Indication: Graves^ disease
     Route: 040
     Dates: start: 202012
  2. TEPEZZA [Suspect]
     Active Substance: TEPROTUMUMAB-TRBW
     Indication: Endocrine ophthalmopathy
     Dosage: 540 MILLIGRAM, QD (FIRST INFUSION)(EVERY 1 DAY FOR 1 DAY)
     Route: 040
     Dates: start: 20230116
  3. TEPEZZA [Suspect]
     Active Substance: TEPROTUMUMAB-TRBW
     Indication: Toxic goitre
     Dosage: 1080 MILLIGRAM, Q3WK (SECOND INFUSION) ( FOR 1 YEAR)
     Route: 040
     Dates: start: 20230206
  4. TEPEZZA [Suspect]
     Active Substance: TEPROTUMUMAB-TRBW
     Dosage: 1080 MILLIGRAM, Q3WK (THIRD INFUSION) ( FOR 1 YEAR)
     Route: 040
     Dates: start: 20230227
  5. TEPEZZA [Suspect]
     Active Substance: TEPROTUMUMAB-TRBW
     Dosage: 1080 MILLIGRAM, Q3WK (FOURTH INFUSION) ( FOR 1 YEAR)
     Route: 040
     Dates: start: 20230320
  6. TEPEZZA [Suspect]
     Active Substance: TEPROTUMUMAB-TRBW
     Dosage: 1080 MILLIGRAM, Q3WK (FOR 6 MONTHS)
     Route: 040
     Dates: start: 20230413
  7. TEPEZZA [Suspect]
     Active Substance: TEPROTUMUMAB-TRBW
     Dosage: 1080 MILLIGRAM, Q3WK (FOR 6 MONTH)
     Route: 040
     Dates: start: 20230504
  8. TEPEZZA [Suspect]
     Active Substance: TEPROTUMUMAB-TRBW
     Route: 040
     Dates: start: 2023
  9. TEPEZZA [Suspect]
     Active Substance: TEPROTUMUMAB-TRBW
     Route: 040
     Dates: start: 2023, end: 2023
  10. PREDNISONE [Suspect]
     Active Substance: PREDNISONE
     Indication: Product used for unknown indication
     Route: 048
  11. PREDNISONE [Suspect]
     Active Substance: PREDNISONE
     Route: 048
  12. ELIQUIS [Concomitant]
     Active Substance: APIXABAN
     Route: 048
  13. ALBUTEROL SULFATE [Concomitant]
     Active Substance: ALBUTEROL SULFATE
     Route: 065
  14. ERYTHROMYCIN [Concomitant]
     Active Substance: ERYTHROMYCIN
     Dosage: 5 MILLIGRAM PER GRAM, QID (1 APPLICATION INTO THE SUTURES AND LOWER CONJUNCTIVAL SAC OF AFFECTED EYE
     Route: 047
  15. ESCITALOPRAM OXALATE [Concomitant]
     Active Substance: ESCITALOPRAM OXALATE
     Route: 065
  16. TIROSINT [Concomitant]
     Active Substance: LEVOTHYROXINE SODIUM
     Route: 048
  17. TIROSINT [Concomitant]
     Active Substance: LEVOTHYROXINE SODIUM
     Route: 048
  18. MELOXICAM [Concomitant]
     Active Substance: MELOXICAM
     Route: 048
  19. PRAMIPEXOLE DIHYDROCHLORIDE [Concomitant]
     Active Substance: PRAMIPEXOLE DIHYDROCHLORIDE
     Route: 048
  20. TRIAMTERENE AND HYDROCHLOROTHIAZIDE [Concomitant]
     Active Substance: HYDROCHLOROTHIAZIDE\TRIAMTERENE
     Route: 048
  21. ZOLPIDEM TARTRATE [Concomitant]
     Active Substance: ZOLPIDEM TARTRATE
     Route: 060
  22. REFRESH CLASSIC [Concomitant]
     Active Substance: POLYVINYL ALCOHOL\POVIDONE
     Dosage: UNK UNK, BID (GTTS)
     Route: 047
  23. SODIUM CHLORIDE [Concomitant]
     Active Substance: SODIUM CHLORIDE
     Route: 065
  24. STERILE WATER [Concomitant]
     Active Substance: WATER
     Route: 065
     Dates: start: 20230413
  25. STERILE WATER [Concomitant]
     Active Substance: WATER
     Route: 065
     Dates: start: 20230504
  26. POLYVINYL ALCOHOL [Concomitant]
     Active Substance: POLYVINYL ALCOHOL
     Route: 065

REACTIONS (30)
  - Deafness permanent [Not Recovered/Not Resolved]
  - Deafness neurosensory [Not Recovered/Not Resolved]
  - Endocrine ophthalmopathy [Unknown]
  - Graves^ disease [Unknown]
  - Pain [Unknown]
  - Emotional distress [Unknown]
  - Anxiety [Unknown]
  - Discomfort [Unknown]
  - Tinnitus [Not Recovered/Not Resolved]
  - Product use complaint [Unknown]
  - Thyroid dermatopathy [Unknown]
  - Off label use [Unknown]
  - Blood pressure increased [Unknown]
  - Dry skin [Unknown]
  - Arthralgia [Unknown]
  - Muscular weakness [Unknown]
  - Hypoaesthesia [Unknown]
  - Swelling [Unknown]
  - Paraesthesia [Unknown]
  - Tremor [Unknown]
  - Alopecia [Unknown]
  - Oedema [Recovering/Resolving]
  - Muscle spasms [Unknown]
  - Headache [Unknown]
  - Fatigue [Unknown]
  - Vomiting [Unknown]
  - Blood glucose increased [Unknown]
  - Eustachian tube patulous [Recovered/Resolved]
  - Diplopia [Unknown]
  - Cerumen impaction [Unknown]

NARRATIVE: CASE EVENT DATE: 20230101
